FAERS Safety Report 25249485 (Version 1)
Quarter: 2025Q2

REPORT INFORMATION
  Report Type: Spontaneous
  Country: US (occurrence: US)
  Receive Date: 20250429
  Receipt Date: 20250429
  Transmission Date: 20250716
  Serious: No
  Sender: CHATTEM
  Company Number: US-OPELLA-2025OHG012527

PATIENT

DRUGS (2)
  1. XYZAL [Suspect]
     Active Substance: LEVOCETIRIZINE DIHYDROCHLORIDE
     Indication: Hepatic steatosis
     Route: 065
  2. XYZAL [Suspect]
     Active Substance: LEVOCETIRIZINE DIHYDROCHLORIDE
     Indication: Irritable bowel syndrome

REACTIONS (2)
  - Somnolence [Unknown]
  - Off label use [Unknown]
